FAERS Safety Report 4562859-7 (Version None)
Quarter: 2005Q1

REPORT INFORMATION
  Report Type: 
  Country: None (occurrence: None)
  Receive Date: 20050121
  Receipt Date: 20050113
  Transmission Date: 20050727
  Serious: Yes (Life-Threatening, Hospitalization)
  Sender: FDA-Public Use
  Company Number: 2005012017

PATIENT
  Age: 76 Year
  Sex: Female

DRUGS (3)
  1. ALDACTONE [Suspect]
     Indication: CARDIAC FAILURE
     Dosage: 200 MG (100 MG, TWICE DAILY), ORAL
     Route: 048
     Dates: start: 20010101, end: 20040528
  2. ENALAPRIL MALEATE [Suspect]
     Indication: HYPERTENSION
     Dosage: 20 MG (DAILY), ORAL
     Route: 048
     Dates: start: 19950101, end: 20040528
  3. BOI-K ASPARTICO (ASPARTIC ACID, POTASSIUM ASCORBATE) [Concomitant]

REACTIONS (4)
  - BRADYCARDIA [None]
  - CARDIAC FAILURE [None]
  - DRUG INTERACTION [None]
  - HYPERKALAEMIA [None]
